FAERS Safety Report 6444510-4 (Version None)
Quarter: 2009Q4

REPORT INFORMATION
  Report Type: 
  Country: None (occurrence: None)
  Receive Date: 20091117
  Receipt Date: 20091117
  Transmission Date: 20100525
  Serious: Yes (Hospitalization)
  Sender: FDA-Public Use
  Company Number: None

PATIENT
  Sex: Male
  Weight: 98 kg

DRUGS (7)
  1. AMIODARONE HCL [Suspect]
     Indication: ATRIAL FLUTTER
     Dosage: 400 MG ONCE PO
     Route: 048
     Dates: start: 20091106, end: 20091107
  2. WARFARIN SODIUM [Concomitant]
  3. FUROSEMIDE [Concomitant]
  4. INSULIN [Concomitant]
  5. ENOXAPARIN SODIUM [Concomitant]
  6. ENALAPRIL MALEATE [Concomitant]
  7. METOPROLOL [Concomitant]

REACTIONS (3)
  - CHEST PAIN [None]
  - DYSPNOEA [None]
  - FLUID OVERLOAD [None]
